FAERS Safety Report 8161552-1 (Version None)
Quarter: 2012Q1

REPORT INFORMATION
  Report Type: 
  Country: None (occurrence: None)
  Receive Date: 20120222
  Receipt Date: 20120222
  Transmission Date: 20120608
  Serious: No
  Sender: FDA-Public Use
  Company Number: None

PATIENT
  Sex: Female

DRUGS (1)
  1. PROLIA [Suspect]
     Indication: OSTEOARTHRITIS
     Dates: start: 20111110

REACTIONS (5)
  - MOVEMENT DISORDER [None]
  - BACK PAIN [None]
  - PAIN IN EXTREMITY [None]
  - PAIN [None]
  - MYALGIA [None]
